FAERS Safety Report 5641830-8 (Version None)
Quarter: 2008Q1

REPORT INFORMATION
  Report Type: 
  Country: None (occurrence: None)
  Receive Date: 20080227
  Receipt Date: 20071120
  Transmission Date: 20080703
  Serious: Yes (Hospitalization)
  Sender: FDA-Public Use
  Company Number: US-PFIZER INC-2007097141

PATIENT
  Sex: Female
  Weight: 73 kg

DRUGS (1)
  1. EXUBERA [Suspect]
     Dosage: DAILY DOSE:7MG-TEXT:TDD: 1 MG QD/3 MG BID
     Route: 055

REACTIONS (1)
  - CARDIAC FAILURE CONGESTIVE [None]
